FAERS Safety Report 9636250 (Version 2)
Quarter: 2014Q1

REPORT INFORMATION
  Report Type: Spontaneous
  Country: ES (occurrence: ES)
  Receive Date: 20131021
  Receipt Date: 20140123
  Transmission Date: 20141002
  Serious: Yes (Hospitalization)
  Sender: FDA-Public Use
  Company Number: ES-PFIZER INC-2013296648

PATIENT
  Age: 88 Year
  Sex: Female

DRUGS (4)
  1. ACOVIL [Suspect]
     Dosage: 5 MG, DAILY
     Route: 048
     Dates: start: 20130426, end: 20130826
  2. DEPRAX [Suspect]
     Dosage: UNK
     Route: 048
     Dates: start: 20130514, end: 20130828
  3. QUETIAPINE [Concomitant]
     Dosage: UNK
  4. ATORVASTATIN [Concomitant]
     Dosage: UNK

REACTIONS (2)
  - Hyponatraemia [Recovered/Resolved]
  - Confusional state [Recovered/Resolved]
